FAERS Safety Report 6941252-3 (Version None)
Quarter: 2010Q3

REPORT INFORMATION
  Report Type: 
  Country: None (occurrence: None)
  Receive Date: 20100825
  Receipt Date: 20100721
  Transmission Date: 20110219
  Serious: No
  Sender: FDA-Public Use
  Company Number: US-BRISTOL-MYERS SQUIBB COMPANY-15202070

PATIENT
  Age: 72 Year
  Sex: Female

DRUGS (2)
  1. ONGLYZA [Suspect]
     Dosage: STARTED FEW WEEKS AGO
  2. GLUCOVANCE [Suspect]
     Dosage: 1DF=5/500MG FOR YEARS

REACTIONS (2)
  - DRUG INEFFECTIVE [None]
  - WEIGHT INCREASED [None]
